FAERS Safety Report 10260027 (Version 1)
Quarter: 2014Q2

REPORT INFORMATION
  Report Type: Spontaneous
  Country: US (occurrence: US)
  Receive Date: 20140625
  Receipt Date: 20140625
  Transmission Date: 20141212
  Serious: Yes (Other)
  Sender: FDA-Public Use
  Company Number: CHPA2014US008663

PATIENT
  Sex: Male

DRUGS (1)
  1. KROGER STEP 1 21 MG [Suspect]
     Route: 062

REACTIONS (1)
  - Myocardial infarction [Unknown]
